FAERS Safety Report 6330289-3 (Version None)
Quarter: 2009Q3

REPORT INFORMATION
  Report Type: 
  Country: None (occurrence: None)
  Receive Date: 20090827
  Receipt Date: 20090731
  Transmission Date: 20100115
  Serious: No
  Sender: FDA-Public Use
  Company Number: US-KINGPHARMUSA00001-K200900912

PATIENT
  Sex: Female
  Weight: 79.365 kg

DRUGS (3)
  1. FLECTOR [Suspect]
     Indication: SPINAL FRACTURE
     Dosage: 1 PATCH, BID
     Route: 061
     Dates: start: 20090701, end: 20090701
  2. SYNTHROID [Concomitant]
     Indication: THYROID DISORDER
     Dosage: UNK
  3. ANALGESICS [Concomitant]
     Indication: PAIN
     Dosage: UNK

REACTIONS (2)
  - APPLICATION SITE PAIN [None]
  - APPLICATION SITE RASH [None]
